FAERS Safety Report 6143725-2 (Version None)
Quarter: 2009Q2

REPORT INFORMATION
  Report Type: 
  Country: None (occurrence: None)
  Receive Date: 20090403
  Receipt Date: 20090327
  Transmission Date: 20091009
  Serious: Yes (Other)
  Sender: FDA-Public Use
  Company Number: US-GENENTECH-280080

PATIENT
  Age: 67 Year
  Sex: Female

DRUGS (1)
  1. RITUXAN [Suspect]
     Indication: RHEUMATOID ARTHRITIS
     Dosage: UNK
     Dates: start: 20090317

REACTIONS (4)
  - DIARRHOEA [None]
  - FIBULA FRACTURE [None]
  - NAUSEA [None]
  - SYNCOPE [None]
